FAERS Safety Report 7508659-7 (Version None)
Quarter: 2011Q2

REPORT INFORMATION
  Report Type: 
  Country: None (occurrence: None)
  Receive Date: 20110527
  Receipt Date: 20100427
  Transmission Date: 20111010
  Serious: No
  Sender: FDA-Public Use
  Company Number: A0857753A

PATIENT
  Age: 17 Year

DRUGS (1)
  1. VENTOLIN HFA [Suspect]
     Route: 061
     Dates: start: 20100311

REACTIONS (5)
  - APPLICATION SITE ERYTHEMA [None]
  - INCORRECT ROUTE OF DRUG ADMINISTRATION [None]
  - EXCORIATION [None]
  - SKIN LESION [None]
  - DRUG ADMINISTRATION ERROR [None]
